FAERS Safety Report 5604799-8 (Version None)
Quarter: 2008Q1

REPORT INFORMATION
  Report Type: 
  Country: None (occurrence: None)
  Receive Date: 20080128
  Receipt Date: 20080116
  Transmission Date: 20080703
  Serious: Yes (Other)
  Sender: FDA-Public Use
  Company Number: BE-PFIZER INC-2005078683

PATIENT
  Sex: Male

DRUGS (8)
  1. DOSTINEX [Suspect]
     Indication: PARKINSON'S DISEASE
     Route: 048
  2. ASPIRIN [Concomitant]
     Route: 048
  3. CABASERIL [Concomitant]
     Route: 048
  4. PROLOPA [Concomitant]
     Route: 048
  5. MIRAPEX [Concomitant]
     Route: 048
  6. TASMAR [Concomitant]
     Route: 048
  7. REMINYL [Concomitant]
     Route: 048
  8. REQUIP [Concomitant]
     Dosage: TEXT:UNKNOWN-FREQ:UNKNOWN
     Route: 048

REACTIONS (3)
  - CARDIAC VALVE DISEASE [None]
  - PARKINSON'S DISEASE [None]
  - PLEUROPERICARDITIS [None]
